FAERS Safety Report 6862942-7 (Version None)
Quarter: 2010Q3

REPORT INFORMATION
  Report Type: 
  Country: None (occurrence: None)
  Receive Date: 20100721
  Receipt Date: 20100714
  Transmission Date: 20110219
  Serious: Yes (Other)
  Sender: FDA-Public Use
  Company Number: A0871233A

PATIENT
  Age: 45 Year
  Sex: Male

DRUGS (1)
  1. NEOTIGASON [Suspect]
     Indication: PSORIASIS
     Dosage: 25MG PER DAY
     Route: 048
     Dates: start: 20070301, end: 20070601

REACTIONS (2)
  - ANGIOEDEMA [None]
  - PERIORBITAL OEDEMA [None]
